FAERS Safety Report 5457136-6 (Version None)
Quarter: 2007Q3

REPORT INFORMATION
  Report Type: 
  Country: None (occurrence: None)
  Receive Date: 20070918
  Receipt Date: 20070103
  Transmission Date: 20080115
  Serious: No
  Sender: FDA-Public Use
  Company Number: US-ASTRAZENECA-2007UW00137

PATIENT
  Age: 50 Year
  Sex: Male
  Weight: 86.2 kg

DRUGS (6)
  1. SEROQUEL [Suspect]
     Indication: BIPOLAR DISORDER
     Route: 048
  2. SEROQUEL [Suspect]
     Indication: HALLUCINATION, VISUAL
     Route: 048
  3. LAMICTAL [Concomitant]
  4. PAXIL [Concomitant]
  5. AMBIEN [Concomitant]
  6. NEXIUM [Concomitant]
     Route: 048

REACTIONS (2)
  - HALLUCINATION, AUDITORY [None]
  - SOMNAMBULISM [None]
